FAERS Safety Report 12300409 (Version 1)
Quarter: 2016Q2

REPORT INFORMATION
  Report Type: Spontaneous
  Country: US (occurrence: US)
  Receive Date: 20160425
  Receipt Date: 20160425
  Transmission Date: 20160815
  Serious: No
  Sender: FDA-Public Use
  Company Number: US-BAUSCH-BL-2015-013868

PATIENT
  Age: 77 Year
  Sex: Female
  Weight: 68.1 kg

DRUGS (1)
  1. LEVOBUNOLOL HYDROCHLORIDE OPHTHALMIC SOLUTION USP 0.5% [Suspect]
     Active Substance: LEVOBUNOLOL HYDROCHLORIDE
     Indication: PROPHYLAXIS
     Route: 047
     Dates: start: 2010

REACTIONS (5)
  - Instillation site dryness [None]
  - Ocular hyperaemia [Not Recovered/Not Resolved]
  - Product package associated injury [Not Recovered/Not Resolved]
  - Eye pain [Not Recovered/Not Resolved]
  - Dry eye [Not Recovered/Not Resolved]

NARRATIVE: CASE EVENT DATE: 20150513
